FAERS Safety Report 7687849-7 (Version None)
Quarter: 2011Q3

REPORT INFORMATION
  Report Type: 
  Country: None (occurrence: None)
  Receive Date: 20110817
  Receipt Date: 20110812
  Transmission Date: 20111222
  Serious: Yes (Death, Other)
  Sender: FDA-Public Use
  Company Number: US-ASTELLAS-2011US004890

PATIENT
  Sex: Male

DRUGS (1)
  1. PROGRAF [Suspect]
     Indication: PANCREAS TRANSPLANT
     Dosage: 1 MG, UID/QD
     Route: 048
     Dates: start: 19980829

REACTIONS (3)
  - RENAL TRANSPLANT [None]
  - OFF LABEL USE [None]
  - DEATH [None]
